FAERS Safety Report 25224661 (Version 2)
Quarter: 2025Q2

REPORT INFORMATION
  Report Type: Spontaneous
  Country: US (occurrence: US)
  Receive Date: 20250422
  Receipt Date: 20250611
  Transmission Date: 20250716
  Serious: Yes (Other)
  Sender: PFIZER
  Company Number: US-PFIZER INC-202500080191

PATIENT
  Age: 33 Year
  Sex: Male

DRUGS (1)
  1. XYNTHA [Suspect]
     Active Substance: MOROCTOCOG ALFA
     Route: 042

REACTIONS (2)
  - Seizure [Not Recovered/Not Resolved]
  - Haemorrhage [Not Recovered/Not Resolved]
